FAERS Safety Report 12239392 (Version 1)
Quarter: 2016Q2

REPORT INFORMATION
  Report Type: Spontaneous
  Country: FR (occurrence: FR)
  Receive Date: 20160405
  Receipt Date: 20160405
  Transmission Date: 20160815
  Serious: Yes (Life-Threatening)
  Sender: FDA-Public Use
  Company Number: FR-PFIZER INC-2016190806

PATIENT
  Age: 1 Day
  Sex: Male

DRUGS (7)
  1. PLAVIX [Suspect]
     Active Substance: CLOPIDOGREL BISULFATE
     Dosage: 75 MG, 1X/DAY
     Route: 064
     Dates: end: 20150131
  2. EUPANTOL [Suspect]
     Active Substance: PANTOPRAZOLE SODIUM
     Dosage: 40 MG, 1X/DAY
     Route: 064
  3. XIENCE [Concomitant]
     Dosage: UNK
     Route: 064
  4. IKOREL [Suspect]
     Active Substance: NICORANDIL
     Dosage: 20 MG, 1X/DAY
     Route: 064
  5. EFIENT [Concomitant]
     Active Substance: PRASUGREL HYDROCHLORIDE
     Dosage: UNK
     Route: 064
  6. BISOCE [Suspect]
     Active Substance: BISOPROLOL
     Dosage: 2.5 MG, 1X/DAY
     Route: 064
  7. KARDEGIC [Suspect]
     Active Substance: ASPIRIN LYSINE
     Dosage: 75 MG, 1X/DAY
     Route: 064

REACTIONS (2)
  - Maternal exposure timing unspecified [Unknown]
  - Apparent death [Recovered/Resolved]

NARRATIVE: CASE EVENT DATE: 20150205
